FAERS Safety Report 8489128-7 (Version None)
Quarter: 2012Q3

REPORT INFORMATION
  Report Type: 
  Country: None (occurrence: None)
  Receive Date: 20120705
  Receipt Date: 20120702
  Transmission Date: 20120928
  Serious: Yes (Other)
  Sender: FDA-Public Use
  Company Number: PHHY2012BR035885

PATIENT
  Sex: Female

DRUGS (9)
  1. DALMADORM [Concomitant]
     Indication: MENTAL DISORDER
     Dosage: 0.5 DF (30 MG), DAILY
     Route: 048
  2. DIOVAN HCT [Suspect]
     Dosage: 0.5 DF (320/12.5 MG), DAILY
     Route: 048
  3. NEOZINE [Concomitant]
     Indication: MENTAL DISORDER
     Dosage: 0.5 DF (25 MG), DAILY
     Route: 048
  4. DIOVAN HCT [Suspect]
     Indication: HYPERTENSION
     Dosage: 1 DF (320/12.5 MG), DAILY
     Route: 048
  5. DIOVAN HCT [Suspect]
     Dosage: 1 DF (80/12.5 MG), QD (MORNING)
     Route: 048
  6. SIMVASTATIN [Concomitant]
     Indication: BLOOD CHOLESTEROL INCREASED
     Dosage: 20 MG, BID (LUNCH AND DINNER)
     Route: 048
  7. METFORMIN HCL [Concomitant]
     Indication: DIABETES MELLITUS
     Dosage: 500 MG, BID (LUNCH AND DINNER)
     Route: 048
     Dates: start: 20030101
  8. GEODON [Concomitant]
     Indication: MENTAL DISORDER
     Dosage: 1 DF, DAILY
     Route: 048
  9. CITALOPRAM HYDROBROMIDE [Concomitant]
     Indication: MENTAL DISORDER
     Dosage: 20 MG, DAILY
     Route: 048

REACTIONS (4)
  - OSTEOPENIA [None]
  - TEMPERATURE INTOLERANCE [None]
  - ARTHRITIS [None]
  - BLOOD PRESSURE FLUCTUATION [None]
